FAERS Safety Report 4724858-1 (Version None)
Quarter: 2005Q3

REPORT INFORMATION
  Report Type: 
  Country: None (occurrence: None)
  Receive Date: 20050726
  Receipt Date: 20050428
  Transmission Date: 20060218
  Serious: Yes (Other)
  Sender: FDA-Public Use
  Company Number: PHEH2005US04947

PATIENT
  Age: 71 Year
  Sex: Male

DRUGS (4)
  1. DIOVAN [Concomitant]
     Route: 048
  2. ASPIRIN [Concomitant]
     Route: 048
  3. NORVASC [Concomitant]
     Route: 048
  4. GLEEVEC [Suspect]
     Indication: CHRONIC MYELOID LEUKAEMIA
     Dosage: 400 MG, QD
     Route: 048
     Dates: start: 20030331

REACTIONS (4)
  - CHROMOSOME ANALYSIS ABNORMAL [None]
  - CHRONIC LYMPHOCYTIC LEUKAEMIA [None]
  - LYMPHOCYTE COUNT INCREASED [None]
  - MALIGNANT NEOPLASM PROGRESSION [None]
